FAERS Safety Report 11588737 (Version 1)
Quarter: 2015Q4

REPORT INFORMATION
  Report Type: Spontaneous
  Country: US (occurrence: None)
  Receive Date: 20151001
  Receipt Date: 20151001
  Transmission Date: 20160304
  Serious: Yes (Hospitalization)
  Sender: FDA-Public Use
  Company Number: None

PATIENT
  Age: 77 Year
  Sex: Female
  Weight: 81 kg

DRUGS (7)
  1. MEMANTINE (NAMENDA XR) [Concomitant]
  2. DONEPEZIL (ARICEPT) [Concomitant]
  3. LEVETIRACETAM (KEPPRA) [Concomitant]
  4. DIVALPROEX [Suspect]
     Active Substance: DIVALPROEX SODIUM
     Indication: DEMENTIA
     Route: 048
  5. PLAVIX [Concomitant]
     Active Substance: CLOPIDOGREL BISULFATE
  6. PRIMIDONE. [Concomitant]
     Active Substance: PRIMIDONE
  7. CELEXA [Concomitant]
     Active Substance: CITALOPRAM HYDROBROMIDE

REACTIONS (4)
  - Abdominal pain [None]
  - Vomiting [None]
  - Pancreatitis acute [None]
  - Nausea [None]

NARRATIVE: CASE EVENT DATE: 20150913
